FAERS Safety Report 16218205 (Version 2)
Quarter: 2019Q2

REPORT INFORMATION
  Report Type: Report from Study
  Country: KR (occurrence: KR)
  Receive Date: 20190419
  Receipt Date: 20190501
  Transmission Date: 20190711
  Serious: Yes (Other)
  Sender: FDA-Public Use
  Company Number: KR-SHIRE-KR201906878

PATIENT

DRUGS (5)
  1. NONACOG GAMMA [Suspect]
     Active Substance: COAGULATION FACTOR IX RECOMBINANT HUMAN
     Indication: FACTOR IX DEFICIENCY
     Dosage: UNK
     Route: 042
     Dates: start: 20170427, end: 20180405
  2. NONACOG GAMMA [Suspect]
     Active Substance: COAGULATION FACTOR IX RECOMBINANT HUMAN
     Dosage: UNK UNK, 1X/WEEK
     Route: 042
     Dates: start: 20180512
  3. NONACOG GAMMA [Suspect]
     Active Substance: COAGULATION FACTOR IX RECOMBINANT HUMAN
     Dosage: 1050 INTERNATIONAL UNIT (80.8 UNKNOWN UNIT), ON DEMAND
     Route: 042
     Dates: start: 20181019, end: 20181019
  4. NONACOG GAMMA [Suspect]
     Active Substance: COAGULATION FACTOR IX RECOMBINANT HUMAN
     Dosage: 34.4 INTERNATIONAL UNIT/KILOGRAM (497 IU TOTAL DOSE), ONE DOSE/ ON DEMAND
     Route: 042
     Dates: start: 20180831, end: 20180831
  5. TRANSAMIN [Concomitant]
     Active Substance: TRANEXAMIC ACID
     Indication: PRODUCT USED FOR UNKNOWN INDICATION

REACTIONS (1)
  - Anti factor IX antibody increased [Recovered/Resolved]

NARRATIVE: CASE EVENT DATE: 201809
